FAERS Safety Report 5401404-0 (Version None)
Quarter: 2007Q3

REPORT INFORMATION
  Report Type: 
  Country: None (occurrence: None)
  Receive Date: 20070731
  Receipt Date: 20070723
  Transmission Date: 20080115
  Serious: Yes (Other)
  Sender: FDA-Public Use
  Company Number: JP-JNJFOC-20070702926

PATIENT
  Age: 36 Year
  Sex: Female

DRUGS (1)
  1. ITRACONAZOLE [Suspect]
     Indication: NAIL TINEA
     Route: 048

REACTIONS (4)
  - ASCITES [None]
  - CHOLECYSTITIS [None]
  - NAUSEA [None]
  - OEDEMA PERIPHERAL [None]
